FAERS Safety Report 17511710 (Version 1)
Quarter: 2020Q1

REPORT INFORMATION
  Report Type: Spontaneous
  Country: US (occurrence: US)
  Receive Date: 20200307
  Receipt Date: 20200307
  Transmission Date: 20200409
  Serious: Yes (Hospitalization)
  Sender: FDA-Public Use
  Company Number: US-TEVA-2020-US-1194971

PATIENT
  Sex: Male

DRUGS (1)
  1. QVAR [Suspect]
     Active Substance: BECLOMETHASONE DIPROPIONATE
     Dosage: DOSE: TWO PUFFS, TWICE DAILY
     Route: 065

REACTIONS (8)
  - Conjunctivitis [Unknown]
  - Nasopharyngitis [Unknown]
  - Influenza [Unknown]
  - Condition aggravated [Unknown]
  - Throat irritation [Unknown]
  - Glossitis [Unknown]
  - Therapeutic product effect incomplete [Unknown]
  - Ear infection [Unknown]
